FAERS Safety Report 15138841 (Version 1)
Quarter: 2018Q3

REPORT INFORMATION
  Report Type: Spontaneous
  Country: AU (occurrence: AU)
  Receive Date: 20180713
  Receipt Date: 20180713
  Transmission Date: 20181010
  Serious: Yes (Other)
  Sender: FDA-Public Use
  Company Number: AU-TEVA-2018-AU-923903

PATIENT

DRUGS (4)
  1. CYTARABINE. [Suspect]
     Active Substance: CYTARABINE
     Route: 065
  2. DASATINIB. [Suspect]
     Active Substance: DASATINIB
     Route: 065
  3. IMATINIB [Suspect]
     Active Substance: IMATINIB
     Route: 065
  4. HYDROXYCARBAMIDE [Suspect]
     Active Substance: HYDROXYUREA
     Route: 065

REACTIONS (5)
  - Disease progression [Unknown]
  - Serositis [Unknown]
  - Blast cell count increased [Unknown]
  - Cytogenetic analysis abnormal [Unknown]
  - Pancytopenia [Unknown]
